FAERS Safety Report 25045197 (Version 1)
Quarter: 2025Q1

REPORT INFORMATION
  Report Type: Spontaneous
  Country: JP (occurrence: JP)
  Receive Date: 20250306
  Receipt Date: 20250306
  Transmission Date: 20250409
  Serious: Yes (Hospitalization)
  Sender: ACCORD
  Company Number: JP-Accord-471608

PATIENT
  Age: 8 Decade
  Sex: Male

DRUGS (12)
  1. CARBOPLATIN [Suspect]
     Active Substance: CARBOPLATIN
     Indication: Lung adenocarcinoma stage III
     Dosage: AREA UNDER THE CONCENTRATION-TIME CURVE OF 6, DAY 1
  2. VONOPRAZAN [Suspect]
     Active Substance: VONOPRAZAN
     Indication: Gastrooesophageal reflux disease
     Dosage: ON DAY 35
  3. BISOPROLOL [Concomitant]
     Active Substance: BISOPROLOL
  4. DISOPYRAMIDE [Concomitant]
     Active Substance: DISOPYRAMIDE
  5. OMEGA-3-ACID ETHYL ESTERS [Concomitant]
     Active Substance: OMEGA-3-ACID ETHYL ESTERS
  6. PACLITAXEL [Concomitant]
     Active Substance: PACLITAXEL
     Indication: Lung adenocarcinoma stage III
     Dosage: NAB-PTX (100 MG/M2, ON DAYS 1, 8, AND 15)
  7. AMLODIPINE [Concomitant]
     Active Substance: AMLODIPINE BESYLATE
  8. TELMISARTAN [Concomitant]
     Active Substance: TELMISARTAN
  9. PEMAFIBRATE [Concomitant]
     Active Substance: PEMAFIBRATE
  10. VONOPRAZAN [Suspect]
     Active Substance: VONOPRAZAN
     Indication: Gastrooesophageal reflux disease
  11. VONOPRAZAN [Suspect]
     Active Substance: VONOPRAZAN
     Indication: Gastrooesophageal reflux disease
     Dosage: ON DAY 98 TO 141
  12. VONOPRAZAN [Suspect]
     Active Substance: VONOPRAZAN
     Indication: Gastrooesophageal reflux disease
     Dosage: ON DAY 168 TO 181

REACTIONS (2)
  - Torsade de pointes [Unknown]
  - Hypomagnesaemia [Unknown]
